FAERS Safety Report 5216788-6 (Version None)
Quarter: 2007Q1

REPORT INFORMATION
  Report Type: 
  Country: None (occurrence: None)
  Receive Date: 20070118
  Receipt Date: 20070105
  Transmission Date: 20070707
  Serious: Yes (Hospitalization, Other)
  Sender: FDA-Public Use
  Company Number: PHFR2007GB00487

PATIENT
  Age: 40 Year
  Sex: Female

DRUGS (3)
  1. CLOMIPRAMINE HCL [Suspect]
     Indication: DRUG USE FOR UNKNOWN INDICATION
     Dosage: 50MG/DAY, ORAL; SEE IMAGE
     Route: 048
  2. FLUOXETINE [Suspect]
     Indication: DRUG USE FOR UNKNOWN INDICATION
     Dosage: 20MG/DAY, ORAL; SEE IMAGE
     Route: 048
  3. AMITRIPTYLINE HCL [Suspect]
     Indication: DRUG USE FOR UNKNOWN INDICATION
     Dosage: 5000 MG

REACTIONS (12)
  - ALCOHOL POISONING [None]
  - DRUG INTERACTION [None]
  - DRY SKIN [None]
  - ELECTROCARDIOGRAM QRS COMPLEX PROLONGED [None]
  - GRAND MAL CONVULSION [None]
  - METABOLIC ACIDOSIS [None]
  - MULTIPLE DRUG OVERDOSE INTENTIONAL [None]
  - MYDRIASIS [None]
  - PAIN [None]
  - SINUS TACHYCARDIA [None]
  - SKIN WARM [None]
  - VENTRICULAR TACHYCARDIA [None]
